FAERS Safety Report 16346857 (Version 2)
Quarter: 2019Q2

REPORT INFORMATION
  Report Type: Spontaneous
  Country: US (occurrence: US)
  Receive Date: 20190523
  Receipt Date: 20190604
  Transmission Date: 20190711
  Serious: No
  Sender: FDA-Public Use
  Company Number: US-SHIRE-US201916153

PATIENT
  Sex: Female

DRUGS (2)
  1. KALBITOR [Suspect]
     Active Substance: ECALLANTIDE
     Indication: HEREDITARY ANGIOEDEMA
     Dosage: UNK, 4X A WEEK
     Route: 065
  2. TAKHZYRO [Concomitant]
     Active Substance: LANADELUMAB-FLYO
     Indication: HEREDITARY ANGIOEDEMA
     Dosage: UNK, 1X/2WKS
     Route: 065
     Dates: start: 201903

REACTIONS (2)
  - Drug ineffective [Unknown]
  - Hereditary angioedema [Unknown]
